FAERS Safety Report 15493246 (Version 1)
Quarter: 2018Q4

REPORT INFORMATION
  Report Type: Spontaneous
  Country: US (occurrence: US)
  Receive Date: 20181004
  Receipt Date: 20181004
  Transmission Date: 20190205
  Serious: Yes (Other)
  Sender: FDA-Public Use
  Company Number: None

PATIENT
  Age: 74 Year
  Sex: Female
  Weight: 63 kg

DRUGS (20)
  1. ACETIC ACID. [Concomitant]
     Active Substance: ACETIC ACID
  2. PRAMIPEXOLE DIHYDROCHLORIDE. [Concomitant]
     Active Substance: PRAMIPEXOLE DIHYDROCHLORIDE
  3. TYLENOL [Concomitant]
     Active Substance: ACETAMINOPHEN
  4. HYDROXYZINE [Concomitant]
     Active Substance: HYDROXYZINE HYDROCHLORIDE
  5. REVLIMID [Concomitant]
     Active Substance: LENALIDOMIDE
  6. DEXAMETHASONE. [Concomitant]
     Active Substance: DEXAMETHASONE
  7. MORPHINE SULFATE. [Concomitant]
     Active Substance: MORPHINE SULFATE
  8. OMEPRAZOLE. [Concomitant]
     Active Substance: OMEPRAZOLE
  9. TRAVATAN Z [Concomitant]
     Active Substance: TRAVOPROST
  10. WARFARIN [Concomitant]
     Active Substance: WARFARIN
  11. NINLARO [Suspect]
     Active Substance: IXAZOMIB CITRATE
     Indication: PLASMA CELL MYELOMA
     Dosage: OTHER FREQUENCY:DAY 1,8,AND 15;?
     Route: 048
     Dates: start: 20180622
  12. FLONASE [Concomitant]
     Active Substance: FLUTICASONE PROPIONATE
  13. CIPRODEX [Concomitant]
     Active Substance: CIPROFLOXACIN HYDROCHLORIDE\DEXAMETHASONE
  14. MULTIVITAMIN [Concomitant]
     Active Substance: VITAMINS
  15. PROCHLORPERAZINE. [Concomitant]
     Active Substance: PROCHLORPERAZINE
  16. ATORVASTATIN [Concomitant]
     Active Substance: ATORVASTATIN
  17. LISINOPRIL. [Concomitant]
     Active Substance: LISINOPRIL
  18. PROAIR HFA [Concomitant]
     Active Substance: ALBUTEROL SULFATE
  19. CALTRATE [Concomitant]
     Active Substance: CALCIUM CARBONATE
  20. FENTANYL. [Concomitant]
     Active Substance: FENTANYL

REACTIONS (3)
  - Bacteraemia [None]
  - Escherichia infection [None]
  - Pyrexia [None]

NARRATIVE: CASE EVENT DATE: 20181004
